FAERS Safety Report 9696294 (Version 1)
Quarter: 2013Q4

REPORT INFORMATION
  Report Type: Spontaneous
  Country: DE (occurrence: None)
  Receive Date: 20131115
  Receipt Date: 20131115
  Transmission Date: 20140711
  Serious: Yes (Congenital Anomaly, Other)
  Sender: FDA-Public Use
  Company Number: FK201304717

PATIENT
  Age: 22 Year
  Sex: Female
  Weight: 58 kg

DRUGS (9)
  1. FUROSEMIDE (MANUFACTURER UNKNOWN) (FUROSEMIDE) (FUROSEMIDE) [Suspect]
     Indication: GLOMERULONEPHRITIS
     Dosage: UNKNOWN, ORAL
     Route: 048
  2. PROGRAF (TACROLIMUS) [Suspect]
     Indication: NEPHROTIC SYNDROME
     Dosage: 1 MG, UNKNOWN, ORAL
     Route: 048
  3. PREDNISOLONE [Suspect]
     Indication: IMMUNE THROMBOCYTOPENIC PURPURA
     Dosage: UNKNOWN, ORAL
     Route: 048
  4. TORASEMIDE (TORASEMIDE) [Suspect]
     Indication: GLOMERULONEPHRITIS
     Dosage: UNKNOWN, ORAL
     Route: 048
  5. FLUVASTATIN [Suspect]
     Indication: HYPERCHOLESTEROLAEMIA
     Dosage: 20 MG, UNKNOWN, ORAL
     Route: 048
  6. RAMIPRIL (RAMIPRIL) [Suspect]
     Indication: GLOMERULONEPHRITIS
     Dosage: 2.5 MG, UNKNOWN, ORAL
     Route: 048
  7. OMEPRAZOLE (OMEPRAZOLE) [Concomitant]
  8. IDEOS (CALCIUM CARBONATE) [Concomitant]
  9. FOLSAURE [Concomitant]

REACTIONS (14)
  - Premature rupture of membranes [None]
  - Premature delivery [None]
  - Congenital musculoskeletal anomaly [None]
  - Talipes [None]
  - Ultrasound pelvis abnormal [None]
  - Dysmorphism [None]
  - Anomaly of external ear congenital [None]
  - Microgenia [None]
  - Retrognathia [None]
  - High arched palate [None]
  - Neck deformity [None]
  - Patent ductus arteriosus [None]
  - Maternal drugs affecting foetus [None]
  - Limb asymmetry [None]
